FAERS Safety Report 11296157 (Version 1)
Quarter: 2015Q3

REPORT INFORMATION
  Report Type: Spontaneous
  Country: US (occurrence: US)
  Receive Date: 20150722
  Receipt Date: 20150722
  Transmission Date: 20151125
  Serious: No
  Sender: FDA-Public Use
  Company Number: US-ELI_LILLY_AND_COMPANY-US201004007768

PATIENT
  Sex: Female

DRUGS (1)
  1. EVISTA [Suspect]
     Active Substance: RALOXIFENE HYDROCHLORIDE
     Indication: PROPHYLAXIS
     Dosage: 60 MEQ, DAILY (1/D)
     Dates: start: 20100418

REACTIONS (8)
  - Ear infection [Unknown]
  - Dizziness [Unknown]
  - Upper respiratory tract infection [Unknown]
  - Cough [Unknown]
  - Hyperhidrosis [Unknown]
  - Dyspnoea [Unknown]
  - Herpes zoster [Unknown]
  - Ear pain [Unknown]
